FAERS Safety Report 16831726 (Version 1)
Quarter: 2019Q4

REPORT INFORMATION
  Report Type: Spontaneous
  Country: US (occurrence: US)
  Receive Date: 20190919
  Receipt Date: 20190919
  Transmission Date: 20200122
  Serious: No
  Sender: FDA-Public Use
  Company Number: None

PATIENT
  Age: 45 Year
  Sex: Female
  Weight: 62.1 kg

DRUGS (10)
  1. AJOVY [Suspect]
     Active Substance: FREMANEZUMAB-VFRM
     Indication: MIGRAINE
     Dosage: ?          OTHER FREQUENCY:MONTHLY;?
     Route: 058
     Dates: start: 20181101, end: 20190919
  2. FLUTICASONE. [Concomitant]
     Active Substance: FLUTICASONE
  3. ALBUTEROL. [Concomitant]
     Active Substance: ALBUTEROL
  4. RIZATRIPTAN. [Concomitant]
     Active Substance: RIZATRIPTAN
  5. METAXALONE. [Concomitant]
     Active Substance: METAXALONE
  6. NAPROXEN. [Concomitant]
     Active Substance: NAPROXEN
  7. DEPO-PROVERA [Concomitant]
     Active Substance: MEDROXYPROGESTERONE ACETATE
  8. PROMETHAZINE [Concomitant]
     Active Substance: PROMETHAZINE HYDROCHLORIDE
  9. MONTELUKAST [Concomitant]
     Active Substance: MONTELUKAST SODIUM
  10. SUMATRIPTAN. [Concomitant]
     Active Substance: SUMATRIPTAN

REACTIONS (5)
  - Nausea [None]
  - Feeling abnormal [None]
  - Pruritus [None]
  - Blood thyroid stimulating hormone increased [None]
  - Memory impairment [None]

NARRATIVE: CASE EVENT DATE: 20190919
